FAERS Safety Report 5278765-9 (Version None)
Quarter: 2007Q1

REPORT INFORMATION
  Report Type: 
  Country: None (occurrence: None)
  Receive Date: 20070322
  Receipt Date: 20070306
  Transmission Date: 20070707
  Serious: Yes (Death)
  Sender: FDA-Public Use
  Company Number: 8014640

PATIENT
  Age: 52 Year
  Sex: Male

DRUGS (5)
  1. LORTAB [Suspect]
     Dosage: NI PRN
  2. REGLAN [Concomitant]
  3. DIGOXIN [Concomitant]
  4. FLAGYL [Concomitant]
  5. LACTULOSE [Concomitant]

REACTIONS (11)
  - ABDOMINAL DISTENSION [None]
  - ABDOMINAL TENDERNESS [None]
  - ANAEMIA [None]
  - CONVULSION [None]
  - HEPATOSPLENOMEGALY [None]
  - HISTIOCYTOSIS HAEMATOPHAGIC [None]
  - HYPOTHERMIA [None]
  - SUBDURAL HAEMATOMA [None]
  - TACHYCARDIA [None]
  - THROMBOCYTOPENIA [None]
  - TOE AMPUTATION [None]
